FAERS Safety Report 8171784-4 (Version None)
Quarter: 2012Q1

REPORT INFORMATION
  Report Type: 
  Country: None (occurrence: None)
  Receive Date: 20120228
  Receipt Date: 20120221
  Transmission Date: 20120608
  Serious: Yes (Hospitalization)
  Sender: FDA-Public Use
  Company Number: US-GLAXOSMITHKLINE-A0967520A

PATIENT
  Age: 26 Year
  Sex: Female

DRUGS (7)
  1. FOLIC ACID [Concomitant]
  2. FLOLAN [Suspect]
     Indication: PRODUCT USED FOR UNKNOWN INDICATION
     Route: 042
  3. REMODULIN [Suspect]
     Indication: ESSENTIAL HYPERTENSION
     Route: 042
     Dates: start: 20110210
  4. SODIUM CHLORIDE [Concomitant]
  5. DEPO-PROVERA [Concomitant]
  6. FERROUS SULFATE TAB [Concomitant]
  7. COUMADIN [Concomitant]

REACTIONS (3)
  - NERVOUSNESS [None]
  - HYPERSENSITIVITY [None]
  - PYREXIA [None]
